FAERS Safety Report 10671647 (Version 1)
Quarter: 2014Q4

REPORT INFORMATION
  Report Type: Spontaneous
  Country: US (occurrence: None)
  Receive Date: 20141222
  Receipt Date: 20141222
  Transmission Date: 20150529
  Serious: Yes (Other)
  Sender: FDA-Public Use
  Company Number: None

PATIENT
  Age: 75 Year
  Sex: Female

DRUGS (2)
  1. SEROQUEL XR [Suspect]
     Active Substance: QUETIAPINE FUMARATE
     Indication: SCHIZOPHRENIA
     Dosage: 1XDAY, AT BEDTIME, TAKEN BY MOUTH
     Route: 048
  2. CLONAZEPAM 0.05 MG [Suspect]
     Active Substance: CLONAZEPAM
     Indication: PANIC ATTACK
     Dates: start: 20141201, end: 20141215

REACTIONS (4)
  - Insomnia [None]
  - Visual impairment [None]
  - Psychiatric symptom [None]
  - Fear [None]

NARRATIVE: CASE EVENT DATE: 20141220
